FAERS Safety Report 10034332 (Version 1)
Quarter: 2014Q1

REPORT INFORMATION
  Report Type: Spontaneous
  Country: US (occurrence: US)
  Receive Date: 20140325
  Receipt Date: 20140325
  Transmission Date: 20141002
  Serious: Yes (Death)
  Sender: FDA-Public Use
  Company Number: US-ROCHE-1370619

PATIENT
  Age: 62 Year
  Sex: Female

DRUGS (8)
  1. DIAZEPAM [Suspect]
     Indication: PRODUCT USED FOR UNKNOWN INDICATION
     Route: 048
  2. DIAZEPAM [Suspect]
     Route: 048
  3. OXYCODONE [Suspect]
     Indication: PRODUCT USED FOR UNKNOWN INDICATION
     Dosage: EXTENDED RELEASE
     Route: 048
  4. OXYCODONE [Suspect]
     Route: 048
  5. ACETAMINOPHEN/OXYCODONE [Suspect]
     Indication: PRODUCT USED FOR UNKNOWN INDICATION
     Route: 048
  6. ACETAMINOPHEN/OXYCODONE [Suspect]
     Route: 048
  7. HYDROMORPHONE [Suspect]
     Indication: PRODUCT USED FOR UNKNOWN INDICATION
     Route: 048
  8. HYDROMORPHONE [Suspect]
     Route: 048

REACTIONS (1)
  - Toxicity to various agents [Fatal]
